FAERS Safety Report 7491015-8 (Version None)
Quarter: 2011Q2

REPORT INFORMATION
  Report Type: 
  Country: None (occurrence: None)
  Receive Date: 20110519
  Receipt Date: 20110510
  Transmission Date: 20111010
  Serious: Yes (Other)
  Sender: FDA-Public Use
  Company Number: CN-ASTRAZENECA-2011SE21223

PATIENT
  Age: 68 Year
  Sex: Female
  Weight: 64 kg

DRUGS (6)
  1. ARIMIDEX [Suspect]
     Indication: BREAST CANCER
     Route: 048
     Dates: start: 20070101
  2. VITAMIN TAB [Concomitant]
  3. ADALAT [Concomitant]
     Indication: HYPERTENSION
     Dates: start: 19930101
  4. PREDNISONE [Concomitant]
     Dates: start: 20090901
  5. ISOSORBIDE MONONITRATE [Concomitant]
  6. TRIPTERYGIUM WILFORDII [Concomitant]

REACTIONS (3)
  - RENAL FAILURE ACUTE [None]
  - PAROSMIA [None]
  - DYSGEUSIA [None]
